FAERS Safety Report 7304524-9 (Version None)
Quarter: 2011Q1

REPORT INFORMATION
  Report Type: 
  Country: None (occurrence: None)
  Receive Date: 20110221
  Receipt Date: 20110209
  Transmission Date: 20110831
  Serious: Yes (Other)
  Sender: FDA-Public Use
  Company Number: US-BRISTOL-MYERS SQUIBB COMPANY-15545320

PATIENT

DRUGS (1)
  1. REYATAZ [Suspect]

REACTIONS (1)
  - OESOPHAGEAL STENOSIS [None]
